FAERS Safety Report 20249126 (Version 2)
Quarter: 2022Q1

REPORT INFORMATION
  Report Type: Spontaneous
  Country: NL (occurrence: NL)
  Receive Date: 20211229
  Receipt Date: 20220104
  Transmission Date: 20220424
  Serious: Yes (Death, Life-Threatening, Hospitalization)
  Sender: FDA-Public Use
  Company Number: NL-CELGENE-NLD-20211207847

PATIENT
  Age: 58 Year
  Sex: Male

DRUGS (118)
  1. LENALIDOMIDE [Suspect]
     Active Substance: LENALIDOMIDE
     Indication: Plasma cell myeloma
     Dosage: 10 MILLIGRAM
     Route: 048
     Dates: start: 20210619, end: 20210930
  2. CARFILZOMIB [Suspect]
     Active Substance: CARFILZOMIB
     Indication: Plasma cell myeloma
     Dosage: 123 MILLIGRAM
     Route: 065
     Dates: start: 20210619, end: 20210924
  3. DEXAMETHASONE [Suspect]
     Active Substance: DEXAMETHASONE
     Indication: Plasma cell myeloma
     Dosage: 40 MILLIGRAM
     Route: 065
     Dates: start: 20210619, end: 20211001
  4. DEXAMETHASONE [Suspect]
     Active Substance: DEXAMETHASONE
     Route: 065
     Dates: start: 20211127, end: 20211127
  5. DEXAMETHASONE [Suspect]
     Active Substance: DEXAMETHASONE
     Route: 065
     Dates: start: 20211128, end: 20211129
  6. CYCLOPHOSPHAMIDE [Concomitant]
     Active Substance: CYCLOPHOSPHAMIDE
     Indication: Product used for unknown indication
     Dosage: 4580 MILLIGRAM
     Route: 065
     Dates: start: 20211029, end: 20211029
  7. MELPHALAN [Concomitant]
     Active Substance: MELPHALAN
     Indication: Product used for unknown indication
     Dosage: 232 MILLIGRAM
     Route: 065
     Dates: start: 20211127, end: 20211128
  8. AMIODARONE [Concomitant]
     Active Substance: AMIODARONE
     Indication: Atrial fibrillation
     Route: 065
     Dates: start: 20211205, end: 20211205
  9. AMIODARONE [Concomitant]
     Active Substance: AMIODARONE
     Route: 065
     Dates: start: 20211208, end: 20211208
  10. AMIODARONE [Concomitant]
     Active Substance: AMIODARONE
     Route: 065
     Dates: start: 20211205, end: 20211211
  11. UNSPECIFIED INGREDIENT [Concomitant]
     Active Substance: UNSPECIFIED INGREDIENT
     Indication: Product used for unknown indication
     Route: 065
  12. MOVICOLON [Concomitant]
     Active Substance: POLYETHYLENE GLYCOL 3350\POTASSIUM CHLORIDE\SODIUM BICARBONATE\SODIUM CHLORIDE
     Indication: Prophylaxis
     Route: 065
     Dates: start: 20210619, end: 20210709
  13. MOVICOLON [Concomitant]
     Active Substance: POLYETHYLENE GLYCOL 3350\POTASSIUM CHLORIDE\SODIUM BICARBONATE\SODIUM CHLORIDE
     Route: 065
     Dates: start: 20211205, end: 20211205
  14. GABAPENTIN [Concomitant]
     Active Substance: GABAPENTIN
     Indication: Product used for unknown indication
     Route: 065
     Dates: start: 20210619, end: 20210827
  15. OXYCODONE [Concomitant]
     Active Substance: OXYCODONE
     Indication: Plasma cell myeloma
     Route: 065
     Dates: start: 20210619, end: 20210720
  16. OXYCODONE [Concomitant]
     Active Substance: OXYCODONE
     Route: 065
     Dates: start: 20210619, end: 20210827
  17. NADROPARIN CALCIUM [Concomitant]
     Active Substance: NADROPARIN CALCIUM
     Indication: Prophylaxis
     Route: 065
     Dates: start: 20210619, end: 20210914
  18. AMLODIPINE [Concomitant]
     Active Substance: AMLODIPINE BESYLATE
     Indication: Product used for unknown indication
     Route: 065
     Dates: start: 20210619, end: 20210621
  19. FLUDEOXYGLUCOSE F-18 [Concomitant]
     Active Substance: FLUDEOXYGLUCOSE F-18
     Indication: Plasma cell myeloma
     Route: 065
     Dates: start: 20210619, end: 20210619
  20. VALACYCLOVIR HYDROCHLORIDE [Concomitant]
     Active Substance: VALACYCLOVIR HYDROCHLORIDE
     Indication: Prophylaxis
     Route: 065
     Dates: start: 20210619, end: 20211029
  21. FUROSEMIDE [Concomitant]
     Active Substance: FUROSEMIDE
     Indication: Prophylaxis
     Route: 065
     Dates: start: 20210716, end: 20210716
  22. FUROSEMIDE [Concomitant]
     Active Substance: FUROSEMIDE
     Indication: Chronic kidney disease
  23. CIPROFLOXACIN [Concomitant]
     Active Substance: CIPROFLOXACIN
     Indication: Prophylaxis
     Route: 065
     Dates: start: 20210625, end: 20210720
  24. CIPROFLOXACIN [Concomitant]
     Active Substance: CIPROFLOXACIN
     Route: 065
     Dates: start: 20211126, end: 20211223
  25. CARBASPIRIN CALCIUM [Concomitant]
     Active Substance: CARBASPIRIN CALCIUM
     Indication: Prophylaxis
     Route: 065
     Dates: start: 20210625, end: 20211029
  26. Polystyrenic sulphonate sodium [Concomitant]
     Indication: Acute kidney injury
     Route: 065
     Dates: start: 20210709, end: 20210712
  27. Calciumcarbonate [Concomitant]
     Indication: Hypocalcaemia
     Route: 065
     Dates: start: 20210713, end: 20210813
  28. Tc-99m tetrofosmine [Concomitant]
     Indication: Plasma cell myeloma
     Route: 065
     Dates: start: 20210809, end: 20210810
  29. 2 mercapto ethane sulphonate sodium [Concomitant]
     Indication: Plasma cell myeloma
     Route: 065
     Dates: start: 20211029, end: 20211029
  30. ADENOSINE [Concomitant]
     Active Substance: ADENOSINE
     Indication: Plasma cell myeloma
     Route: 065
     Dates: start: 20210810, end: 20210810
  31. LIDOCAINE [Concomitant]
     Active Substance: LIDOCAINE
     Indication: Plasma cell myeloma
     Route: 065
     Dates: start: 20211006, end: 20211006
  32. FILGRASTIM [Concomitant]
     Active Substance: FILGRASTIM
     Indication: Plasma cell myeloma
     Route: 065
     Dates: start: 20211029, end: 20211117
  33. ONDANSETRON [Concomitant]
     Active Substance: ONDANSETRON
     Indication: Prophylaxis
     Route: 065
     Dates: start: 20211129, end: 20211201
  34. CALCIUM GLUCONATE [Concomitant]
     Active Substance: CALCIUM GLUCONATE
     Indication: Prophylaxis
     Route: 065
     Dates: start: 20211108, end: 20211110
  35. POTASSIUM CHLORIDE [Concomitant]
     Active Substance: POTASSIUM CHLORIDE
     Indication: Prophylaxis
     Route: 065
     Dates: start: 20211109, end: 20211110
  36. AMPHOTERICIN B [Concomitant]
     Active Substance: AMPHOTERICIN B
     Indication: Prophylaxis
     Route: 065
     Dates: start: 20211126, end: 20211202
  37. CEFAZOLIN [Concomitant]
     Active Substance: CEFAZOLIN
     Indication: Prophylaxis
     Route: 065
     Dates: start: 20211126, end: 20211204
  38. Potassiumchloride [Concomitant]
     Indication: Prophylaxis
     Route: 065
     Dates: start: 20211127, end: 20211128
  39. Potassiumchloride [Concomitant]
     Indication: Neutropenic sepsis
     Route: 065
     Dates: start: 20211204, end: 20211205
  40. Potassiumchloride [Concomitant]
     Indication: Acute kidney injury
     Route: 065
     Dates: start: 20211206, end: 20211210
  41. Potassiumchloride [Concomitant]
     Indication: Mucosal inflammation
     Route: 065
     Dates: start: 20211215, end: 20211223
  42. Potassiumchloride [Concomitant]
     Indication: Hypotension
  43. Potassiumchloride [Concomitant]
     Indication: Respiratory failure
  44. Potassiumchloride [Concomitant]
     Indication: Metabolic acidosis
  45. Potassiumchloride [Concomitant]
     Indication: Pancytopenia
  46. APREPITANT [Concomitant]
     Active Substance: APREPITANT
     Indication: Prophylaxis
     Route: 065
     Dates: start: 20211127, end: 20211127
  47. APREPITANT [Concomitant]
     Active Substance: APREPITANT
     Route: 065
     Dates: start: 20211128, end: 20211129
  48. HYDROCORTISONE [Concomitant]
     Active Substance: HYDROCORTISONE
     Indication: Plasma cell myeloma
     Route: 065
     Dates: start: 20211130, end: 20211130
  49. HYDROCORTISONE [Concomitant]
     Active Substance: HYDROCORTISONE
     Indication: Neutropenic sepsis
     Route: 065
     Dates: start: 20211205, end: 20211205
  50. HYDROCORTISONE [Concomitant]
     Active Substance: HYDROCORTISONE
     Indication: Mucosal inflammation
     Route: 065
     Dates: start: 20211208, end: 20211208
  51. HYDROCORTISONE [Concomitant]
     Active Substance: HYDROCORTISONE
     Indication: Hypotension
     Route: 065
     Dates: start: 20211220, end: 20211220
  52. HYDROCORTISONE [Concomitant]
     Active Substance: HYDROCORTISONE
     Indication: Acute kidney injury
  53. HYDROCORTISONE [Concomitant]
     Active Substance: HYDROCORTISONE
     Indication: Respiratory failure
  54. CLEMASTINE [Concomitant]
     Active Substance: CLEMASTINE
     Indication: Prophylaxis
     Route: 065
     Dates: start: 20211130, end: 20211130
  55. OLIMEL [Concomitant]
     Active Substance: AMINO ACIDS\DEXTROSE\SOYBEAN OIL
     Indication: Mucosal inflammation
     Route: 065
     Dates: start: 20211203, end: 20211223
  56. LOPERAMIDE [Concomitant]
     Active Substance: LOPERAMIDE
     Indication: Mucosal inflammation
     Route: 065
     Dates: start: 20211203, end: 20211208
  57. LORAZEPAM [Concomitant]
     Active Substance: LORAZEPAM
     Indication: Prophylaxis
     Route: 065
     Dates: start: 20211204, end: 20211223
  58. LORAZEPAM [Concomitant]
     Active Substance: LORAZEPAM
     Route: 065
     Dates: start: 20211219, end: 20211223
  59. CEFTAZIDIME [Concomitant]
     Active Substance: CEFTAZIDIME
     Indication: Prophylaxis
     Route: 065
     Dates: start: 20211204, end: 20211205
  60. METOCLOPRAMIDE [Concomitant]
     Active Substance: METOCLOPRAMIDE
     Indication: Prophylaxis
     Route: 065
     Dates: start: 20211127, end: 20211205
  61. METOCLOPRAMIDE [Concomitant]
     Active Substance: METOCLOPRAMIDE
     Route: 065
     Dates: start: 20211203, end: 20211204
  62. ACETAMINOPHEN [Concomitant]
     Active Substance: ACETAMINOPHEN
     Indication: Mucosal inflammation
     Route: 065
     Dates: start: 20211205, end: 20211223
  63. NOREPINEPHRINE\NOREPINEPHRINE BITARTRATE [Concomitant]
     Active Substance: NOREPINEPHRINE\NOREPINEPHRINE BITARTRATE
     Indication: Hypotension
     Route: 065
     Dates: start: 20211205, end: 20211223
  64. MORPHINE [Concomitant]
     Active Substance: MORPHINE
     Indication: Neutropenic sepsis
     Route: 065
     Dates: start: 20211205, end: 20211223
  65. MORPHINE [Concomitant]
     Active Substance: MORPHINE
     Indication: Mucosal inflammation
     Route: 065
     Dates: start: 20211208, end: 20211223
  66. MORPHINE [Concomitant]
     Active Substance: MORPHINE
     Indication: Respiratory failure
  67. INSULIN ASPART [Concomitant]
     Active Substance: INSULIN ASPART
     Indication: Neutropenic sepsis
     Route: 065
     Dates: start: 20211205, end: 20211223
  68. INSULIN ASPART [Concomitant]
     Active Substance: INSULIN ASPART
     Indication: Mucosal inflammation
     Route: 065
     Dates: start: 20210619, end: 20210621
  69. INSULIN ASPART [Concomitant]
     Active Substance: INSULIN ASPART
     Indication: Hypotension
  70. INSULIN ASPART [Concomitant]
     Active Substance: INSULIN ASPART
     Indication: Acute kidney injury
  71. INSULIN ASPART [Concomitant]
     Active Substance: INSULIN ASPART
     Indication: Respiratory failure
  72. INSULIN ASPART [Concomitant]
     Active Substance: INSULIN ASPART
     Indication: Metabolic acidosis
  73. SODIUM BICARBONATE [Concomitant]
     Active Substance: SODIUM BICARBONATE
     Indication: Metabolic acidosis
     Route: 065
     Dates: start: 20211205, end: 20211210
  74. MAGNESIUM SULFATE [Concomitant]
     Active Substance: MAGNESIUM SULFATE
     Indication: Acute kidney injury
     Route: 065
     Dates: start: 20211108, end: 20211110
  75. MAGNESIUM SULFATE [Concomitant]
     Active Substance: MAGNESIUM SULFATE
     Indication: Neutropenic sepsis
     Route: 065
     Dates: start: 20211205, end: 20211205
  76. MAGNESIUM SULFATE [Concomitant]
     Active Substance: MAGNESIUM SULFATE
     Indication: Prophylaxis
  77. METOPROLOL [Concomitant]
     Active Substance: METOPROLOL
     Indication: Neutropenic sepsis
     Route: 065
     Dates: start: 20211205, end: 20211205
  78. ALBUMIN HUMAN [Concomitant]
     Active Substance: ALBUMIN HUMAN
     Indication: Pancytopenia
     Route: 065
     Dates: start: 20211205, end: 20211222
  79. PANTOPRAZOLE [Concomitant]
     Active Substance: PANTOPRAZOLE
     Indication: Prophylaxis
     Route: 065
     Dates: start: 20211206, end: 20211215
  80. PANTOPRAZOLE [Concomitant]
     Active Substance: PANTOPRAZOLE
     Route: 065
     Dates: start: 20211215, end: 20211223
  81. FLUCONAZOLE [Concomitant]
     Active Substance: FLUCONAZOLE
     Indication: Prophylaxis
     Route: 065
     Dates: start: 20211202, end: 20211218
  82. FLUCONAZOLE [Concomitant]
     Active Substance: FLUCONAZOLE
     Route: 065
     Dates: start: 20211206, end: 20211208
  83. Salbutamole Ipratropium [Concomitant]
     Indication: Respiratory failure
     Route: 065
     Dates: start: 20211207, end: 20211208
  84. Salbutamole Ipratropium [Concomitant]
     Route: 065
     Dates: start: 20211206, end: 20211208
  85. MIDAZOLAM [Concomitant]
     Active Substance: MIDAZOLAM
     Indication: Respiratory failure
     Route: 065
     Dates: start: 20211207, end: 20211211
  86. MIDAZOLAM [Concomitant]
     Active Substance: MIDAZOLAM
     Indication: Acute kidney injury
     Route: 065
     Dates: start: 20211206, end: 20211208
  87. MIDAZOLAM [Concomitant]
     Active Substance: MIDAZOLAM
     Indication: Hypotension
     Route: 065
     Dates: start: 20211222, end: 20211223
  88. MIDAZOLAM [Concomitant]
     Active Substance: MIDAZOLAM
     Indication: Mucosal inflammation
  89. MIDAZOLAM [Concomitant]
     Active Substance: MIDAZOLAM
     Indication: Neutropenic sepsis
  90. MIDAZOLAM [Concomitant]
     Active Substance: MIDAZOLAM
     Indication: Prophylaxis
  91. CASPOFUNGIN [Concomitant]
     Active Substance: CASPOFUNGIN
     Indication: Neutropenic sepsis
     Route: 065
     Dates: start: 20211207, end: 20211223
  92. CASPOFUNGIN [Concomitant]
     Active Substance: CASPOFUNGIN
     Route: 065
     Dates: start: 20211206, end: 20211208
  93. VORICONAZOLE [Concomitant]
     Active Substance: VORICONAZOLE
     Indication: Neutropenic sepsis
     Route: 065
     Dates: start: 20211207, end: 20211223
  94. VORICONAZOLE [Concomitant]
     Active Substance: VORICONAZOLE
     Route: 065
     Dates: start: 20211206, end: 20211208
  95. IOMEPROL [Concomitant]
     Active Substance: IOMEPROL
     Indication: Neutropenic sepsis
     Route: 065
     Dates: start: 20211207, end: 20211223
  96. IOMEPROL [Concomitant]
     Active Substance: IOMEPROL
     Indication: Mucosal inflammation
     Route: 065
     Dates: start: 20211206, end: 20211208
  97. IOMEPROL [Concomitant]
     Active Substance: IOMEPROL
     Indication: Hypotension
  98. IOMEPROL [Concomitant]
     Active Substance: IOMEPROL
     Indication: Acute kidney injury
  99. IOMEPROL [Concomitant]
     Active Substance: IOMEPROL
     Indication: Respiratory failure
  100. IOMEPROL [Concomitant]
     Active Substance: IOMEPROL
     Indication: Metabolic acidosis
  101. IOMEPROL [Concomitant]
     Active Substance: IOMEPROL
     Indication: Pancytopenia
  102. Klysma [Concomitant]
     Indication: Prophylaxis
     Route: 065
     Dates: start: 20211209, end: 20211209
  103. CVVH potassium chloride/magnesium chloride [Concomitant]
     Indication: Acute kidney injury
     Route: 065
     Dates: start: 20211210, end: 20211223
  104. CVVH potassium chloride/magnesium chloride [Concomitant]
     Indication: Metabolic acidosis
  105. CRRT Regiocit potassium/citrate [Concomitant]
     Indication: Acute kidney injury
     Route: 065
     Dates: start: 20211210, end: 20211223
  106. CRRT Regiocit potassium/citrate [Concomitant]
     Indication: Metabolic acidosis
  107. CRRT biphozyl sodium/potassium [Concomitant]
     Indication: Acute kidney injury
     Route: 065
     Dates: start: 20211210, end: 20211223
  108. CRRT biphozyl sodium/potassium [Concomitant]
     Indication: Metabolic acidosis
  109. CHLORAMPHENICOL [Concomitant]
     Active Substance: CHLORAMPHENICOL
     Indication: Acute kidney injury
     Route: 065
     Dates: start: 20211210, end: 20211223
  110. CHLORAMPHENICOL [Concomitant]
     Active Substance: CHLORAMPHENICOL
     Indication: Metabolic acidosis
  111. PHYTONADIONE [Concomitant]
     Active Substance: PHYTONADIONE
     Indication: Prophylaxis
     Route: 065
     Dates: start: 20211215, end: 20211215
  112. PHYTONADIONE [Concomitant]
     Active Substance: PHYTONADIONE
     Route: 065
     Dates: start: 20211215, end: 20211219
  113. TEMAZEPAM [Concomitant]
     Active Substance: TEMAZEPAM
     Indication: Prophylaxis
     Route: 065
     Dates: start: 20211219, end: 20211220
  114. OXAZEPAM [Concomitant]
     Active Substance: OXAZEPAM
     Indication: Prophylaxis
     Route: 065
     Dates: start: 20211219, end: 20211223
  115. CLONIDINE [Concomitant]
     Active Substance: CLONIDINE
     Indication: Prophylaxis
     Route: 065
     Dates: start: 20211220, end: 20211223
  116. CLONIDINE [Concomitant]
     Active Substance: CLONIDINE
     Indication: Atrial fibrillation
  117. CLONIDINE [Concomitant]
     Active Substance: CLONIDINE
     Indication: Neutropenic sepsis
  118. CLONIDINE [Concomitant]
     Active Substance: CLONIDINE
     Indication: Acute kidney injury

REACTIONS (1)
  - Septic shock [Fatal]

NARRATIVE: CASE EVENT DATE: 20211204
